FAERS Safety Report 11309519 (Version 1)
Quarter: 2015Q3

REPORT INFORMATION
  Report Type: Report from Study
  Country: FR (occurrence: FR)
  Receive Date: 20150724
  Receipt Date: 20150724
  Transmission Date: 20151125
  Serious: Yes (Other)
  Sender: FDA-Public Use
  Company Number: FR-MERCK-1506FRA000766

PATIENT
  Age: 58 Year
  Sex: Male
  Weight: 99 kg

DRUGS (1)
  1. PEMBROLIZUMAB. [Suspect]
     Active Substance: PEMBROLIZUMAB
     Indication: MALIGNANT MELANOMA
     Dosage: 2 MG/KG, QM (ALSO REPORTED AS 198 MG)
     Route: 042
     Dates: start: 20150318

REACTIONS (2)
  - Hepatocellular injury [Unknown]
  - Hypothyroidism [Unknown]

NARRATIVE: CASE EVENT DATE: 20150408
